FAERS Safety Report 6029959-6 (Version None)
Quarter: 2009Q1

REPORT INFORMATION
  Report Type: 
  Country: None (occurrence: None)
  Receive Date: 20090107
  Receipt Date: 20081230
  Transmission Date: 20090719
  Serious: Yes (Hospitalization)
  Sender: FDA-Public Use
  Company Number: A0759013B

PATIENT
  Age: 64 Year
  Sex: Male

DRUGS (11)
  1. MELPHALAN [Suspect]
     Indication: MANTLE CELL LYMPHOMA
     Route: 042
     Dates: start: 20070523
  2. VELCADE [Suspect]
     Indication: MANTLE CELL LYMPHOMA
     Dosage: 1.5MGM2 CYCLIC
     Route: 040
     Dates: start: 20070511
  3. RITUXIMAB [Suspect]
     Indication: MANTLE CELL LYMPHOMA
     Dates: start: 20070426
  4. CARMUSTINE [Suspect]
     Indication: MANTLE CELL LYMPHOMA
     Route: 042
     Dates: start: 20070516
  5. ETOPOSIDE [Suspect]
     Route: 042
     Dates: start: 20070519
  6. CYTARABINE [Suspect]
     Indication: MANTLE CELL LYMPHOMA
     Route: 042
     Dates: start: 20070519
  7. SYNTHROID [Concomitant]
  8. NEXIUM [Concomitant]
  9. REGLAN [Concomitant]
  10. BENADRYL [Concomitant]
  11. HYDROCORTISONE [Concomitant]

REACTIONS (14)
  - ABDOMINAL DISTENSION [None]
  - ABDOMINAL PAIN [None]
  - ATRIAL FIBRILLATION [None]
  - BLOODY DISCHARGE [None]
  - DIARRHOEA HAEMORRHAGIC [None]
  - GASTROINTESTINAL HAEMORRHAGE [None]
  - HYPOTENSION [None]
  - ILEUS [None]
  - NAUSEA [None]
  - RENAL FAILURE ACUTE [None]
  - SEPSIS [None]
  - STAPHYLOCOCCAL SEPSIS [None]
  - STOMATITIS [None]
  - VOMITING [None]
